FAERS Safety Report 24444067 (Version 1)
Quarter: 2024Q4

REPORT INFORMATION
  Report Type: Spontaneous
  Country: US (occurrence: None)
  Receive Date: 20241015
  Receipt Date: 20241015
  Transmission Date: 20250115
  Serious: Yes (Hospitalization)
  Sender: Public
  Company Number: None

PATIENT
  Age: 62 Year
  Sex: Male
  Weight: 76 kg

DRUGS (1)
  1. CEFAZOLIN SODIUM [Suspect]
     Active Substance: CEFAZOLIN SODIUM
     Indication: Atrial fibrillation
     Dosage: OTHER FREQUENCY : ONCE;?
     Route: 042
     Dates: start: 20240725, end: 20240725

REACTIONS (4)
  - Respiratory depression [None]
  - Hyperhidrosis [None]
  - Tachycardia [None]
  - Vomiting [None]

NARRATIVE: CASE EVENT DATE: 20240725
